FAERS Safety Report 5656035-4 (Version None)
Quarter: 2008Q1

REPORT INFORMATION
  Report Type: 
  Country: None (occurrence: None)
  Receive Date: 20080307
  Receipt Date: 20080226
  Transmission Date: 20080703
  Serious: Yes (Other)
  Sender: FDA-Public Use
  Company Number: US-PFIZER INC-2008019180

PATIENT
  Sex: Female
  Weight: 59.09 kg

DRUGS (7)
  1. CHANTIX [Suspect]
     Indication: SMOKING CESSATION THERAPY
     Dates: start: 20070301, end: 20080101
  2. ESTRADIOL [Concomitant]
  3. OXYCONTIN [Concomitant]
  4. VITAMINS [Concomitant]
  5. CALCIUM [Concomitant]
  6. HYDROXYZINE [Concomitant]
  7. EPHEDRINE SUL CAP [Concomitant]

REACTIONS (4)
  - BOREDOM [None]
  - DYSPNOEA [None]
  - SURGERY [None]
  - WRONG TECHNIQUE IN DRUG USAGE PROCESS [None]
